FAERS Safety Report 10188341 (Version 4)
Quarter: 2014Q3

REPORT INFORMATION
  Report Type: Spontaneous
  Country: MY (occurrence: MY)
  Receive Date: 20140522
  Receipt Date: 20140711
  Transmission Date: 20150326
  Serious: No
  Sender: FDA-Public Use
  Company Number: MY-JNJFOC-20140506885

PATIENT
  Sex: Male

DRUGS (1)
  1. ZYTIGA [Suspect]
     Active Substance: ABIRATERONE ACETATE
     Indication: PRODUCT USED FOR UNKNOWN INDICATION
     Route: 048
     Dates: start: 20140416, end: 20140508

REACTIONS (2)
  - Disease progression [Unknown]
  - Product quality issue [Unknown]

NARRATIVE: CASE EVENT DATE: 20140508
